FAERS Safety Report 12771560 (Version 4)
Quarter: 2016Q4

REPORT INFORMATION
  Report Type: Spontaneous
  Country: JP (occurrence: JP)
  Receive Date: 20160922
  Receipt Date: 20161108
  Transmission Date: 20170207
  Serious: Yes (Hospitalization)
  Sender: FDA-Public Use
  Company Number: JP-HTU-2016JP012096

PATIENT
  Age: 73 Year
  Sex: Male
  Weight: 75 kg

DRUGS (4)
  1. AVASTIN [Concomitant]
     Active Substance: BEVACIZUMAB
     Indication: COLON CANCER
     Dosage: 330 MG, SINGLE
     Route: 041
     Dates: start: 20160829, end: 20160829
  2. EMEND [Suspect]
     Active Substance: APREPITANT
     Dosage: 125 MG, SINGLE
     Route: 048
     Dates: start: 20160829, end: 20160829
  3. DEXART [Concomitant]
     Active Substance: DEXAMETHASONE SODIUM PHOSPHATE
     Dosage: 3.3 MG, SINGLE
     Route: 041
     Dates: start: 20160829, end: 20160829
  4. ALOXI [Suspect]
     Active Substance: PALONOSETRON HYDROCHLORIDE
     Indication: PROPHYLAXIS OF NAUSEA AND VOMITING
     Dosage: 0.75 MG, SINGLE
     Route: 041
     Dates: start: 20160829, end: 20160829

REACTIONS (1)
  - Epilepsy [Recovering/Resolving]

NARRATIVE: CASE EVENT DATE: 20160829
